FAERS Safety Report 22068130 (Version 1)
Quarter: 2023Q1

REPORT INFORMATION
  Report Type: Spontaneous
  Country: ES (occurrence: ES)
  Receive Date: 20230307
  Receipt Date: 20230307
  Transmission Date: 20230417
  Serious: Yes (Other)
  Sender: FDA-Public Use
  Company Number: ES-STRIDES ARCOLAB LIMITED-2023SP003374

PATIENT
  Sex: Female

DRUGS (4)
  1. AMPICILLIN TRIHYDRATE [Suspect]
     Active Substance: AMPICILLIN TRIHYDRATE
     Indication: Antibiotic prophylaxis
     Dosage: 1 GRAM (6 HOURS)
     Route: 065
  2. GENTAMICIN [Suspect]
     Active Substance: GENTAMICIN
     Indication: Antibiotic prophylaxis
     Dosage: 80 MILLIGRAM (8 HOURS)
     Route: 065
  3. AZITHROMYCIN [Suspect]
     Active Substance: AZITHROMYCIN
     Indication: Antibiotic prophylaxis
     Dosage: 1 GRAM, UNKNOWN
     Route: 065
  4. INDOMETHACIN [Suspect]
     Active Substance: INDOMETHACIN
     Indication: Tocolysis
     Dosage: 50 MILLIGRAM (6 HOURS) (IMMEDIATELY PRIOR TO AND UNTIL 48H AFTER CERCLAGE PLACEMENT  )
     Route: 065

REACTIONS (2)
  - Premature delivery [Unknown]
  - Maternal exposure during pregnancy [Unknown]
